FAERS Safety Report 6268326-7 (Version None)
Quarter: 2009Q3

REPORT INFORMATION
  Report Type: 
  Country: None (occurrence: None)
  Receive Date: 20090714
  Receipt Date: 20090714
  Transmission Date: 20100115
  Serious: No
  Sender: FDA-Public Use
  Company Number: None

PATIENT
  Age: 34 Year
  Sex: Female
  Weight: 43.9989 kg

DRUGS (4)
  1. SEROQUEL [Suspect]
     Indication: BIPOLAR DISORDER
     Dosage: DONT REMEMBER SEROQUEL ONCE A DAY PO
     Route: 048
     Dates: start: 20040901, end: 20051001
  2. SEROQUEL [Suspect]
     Indication: BIPOLAR DISORDER
     Dosage: DONT REMEMBER SEROQUEL ONCE A DAY PO
     Route: 048
     Dates: start: 20051001, end: 20061001
  3. SEROQUEL [Concomitant]
  4. LITHIUM CARBONATE [Concomitant]

REACTIONS (5)
  - CORRECTIVE LENS USER [None]
  - DRUG INEFFECTIVE [None]
  - MOTOR DYSFUNCTION [None]
  - POLYMYALGIA RHEUMATICA [None]
  - TREMOR [None]
